FAERS Safety Report 6307935-3 (Version None)
Quarter: 2009Q3

REPORT INFORMATION
  Report Type: 
  Country: None (occurrence: None)
  Receive Date: 20090813
  Receipt Date: 20090803
  Transmission Date: 20100115
  Serious: Yes (Hospitalization)
  Sender: FDA-Public Use
  Company Number: GB-ELI_LILLY_AND_COMPANY-GB200908000199

PATIENT
  Age: 59 Year
  Sex: Male
  Weight: 105 kg

DRUGS (9)
  1. BYETTA [Suspect]
     Indication: DIABETES MELLITUS INADEQUATE CONTROL
     Dosage: 10 UG, 2/D
     Route: 058
     Dates: start: 20090215, end: 20090601
  2. AMITRIPTYLINE [Concomitant]
  3. ASPIRIN [Concomitant]
  4. ATORVASTATIN [Concomitant]
  5. BENDROFLUMETHIAZIDE [Concomitant]
  6. ENALAPRIL MALEATE [Concomitant]
  7. LEVEMIR [Concomitant]
  8. METFORMIN [Concomitant]
  9. NOVORAPID [Concomitant]

REACTIONS (6)
  - ENCEPHALOPATHY [None]
  - HEPATITIS CHOLESTATIC [None]
  - LIVER FUNCTION TEST ABNORMAL [None]
  - RENAL FAILURE [None]
  - VOMITING [None]
  - WEIGHT DECREASED [None]
